FAERS Safety Report 8157597-8 (Version None)
Quarter: 2012Q1

REPORT INFORMATION
  Report Type: 
  Country: None (occurrence: None)
  Receive Date: 20120222
  Receipt Date: 20110823
  Transmission Date: 20120608
  Serious: No
  Sender: FDA-Public Use
  Company Number: US-ASTRAZENECA-2011SE50846

PATIENT

DRUGS (12)
  1. METFORMIN HCL [Concomitant]
  2. PRAMIPEXOLE DIHYCHLLORIDE [Concomitant]
  3. PRILOSEC [Suspect]
     Route: 048
     Dates: start: 20110116
  4. SEROQUEL [Suspect]
     Route: 048
     Dates: start: 20110402
  5. PAROXETINE HCL [Concomitant]
  6. LITHIUM CARBONATE [Concomitant]
  7. SYNTHROID [Concomitant]
  8. SIMVASTATIN [Concomitant]
  9. CLONAZEPAM [Concomitant]
  10. ENABLEX [Concomitant]
  11. ATENOLOL [Suspect]
     Route: 048
     Dates: start: 20110116
  12. IBUPROFEN TABLETS [Concomitant]

REACTIONS (1)
  - OEDEMA [None]
